FAERS Safety Report 6327993-X (Version None)
Quarter: 2009Q3

REPORT INFORMATION
  Report Type: 
  Country: None (occurrence: None)
  Receive Date: 20090825
  Receipt Date: 20090306
  Transmission Date: 20100115
  Serious: No
  Sender: FDA-Public Use
  Company Number: US-ABBOTT-08P-163-0479189-00

PATIENT
  Sex: Male
  Weight: 69.916 kg

DRUGS (8)
  1. SYNTHROID [Suspect]
     Indication: BASEDOW'S DISEASE
     Dates: start: 19930101, end: 20040101
  2. SYNTHROID [Suspect]
  3. SYNTHROID [Suspect]
     Dosage: 125MCG DAILY IN AM
     Dates: start: 20040101
  4. NASONEX [Concomitant]
     Indication: SEASONAL ALLERGY
     Route: 045
  5. CLARITIN [Concomitant]
     Indication: SEASONAL ALLERGY
     Route: 048
  6. ATIVAN [Concomitant]
     Indication: TREMOR
     Dosage: AS REQUIRED
     Route: 048
  7. ATIVAN [Concomitant]
     Indication: HYPERTHYROIDISM
  8. ALBUTEROL [Concomitant]
     Indication: ASTHMA
     Dosage: AS REQUIRED
     Route: 055

REACTIONS (6)
  - BLOOD THYROID STIMULATING HORMONE ABNORMAL [None]
  - FATIGUE [None]
  - HYPERTHYROIDISM [None]
  - THERAPY REGIMEN CHANGED [None]
  - TREMOR [None]
  - WEIGHT FLUCTUATION [None]
